FAERS Safety Report 22163726 (Version 1)
Quarter: 2023Q2

REPORT INFORMATION
  Report Type: Spontaneous
  Country: US (occurrence: US)
  Receive Date: 20230401
  Receipt Date: 20230401
  Transmission Date: 20230721
  Serious: No
  Sender: FDA-Public Use
  Company Number: US-THEA-2022002108

PATIENT
  Age: 65 Year
  Sex: Female

DRUGS (2)
  1. COSOPT PF [Suspect]
     Active Substance: DORZOLAMIDE HYDROCHLORIDE\TIMOLOL MALEATE
     Indication: Glaucoma
     Dosage: LEFT EYE
     Route: 047
     Dates: start: 202205, end: 202205
  2. COSOPT PF [Suspect]
     Active Substance: DORZOLAMIDE HYDROCHLORIDE\TIMOLOL MALEATE
     Indication: Glaucoma
     Dosage: RIGHT EYE
     Route: 047
     Dates: start: 202205

REACTIONS (2)
  - Ocular hyperaemia [Recovering/Resolving]
  - Eye irritation [Recovering/Resolving]

NARRATIVE: CASE EVENT DATE: 20220501
